FAERS Safety Report 8330808-1 (Version None)
Quarter: 2012Q2

REPORT INFORMATION
  Report Type: 
  Country: None (occurrence: None)
  Receive Date: 20120502
  Receipt Date: 20120425
  Transmission Date: 20120825
  Serious: Yes (Hospitalization)
  Sender: FDA-Public Use
  Company Number: US-ROCHE-1041151

PATIENT
  Age: 72 Year
  Sex: Female
  Weight: 56.75 kg

DRUGS (5)
  1. CYCLOPHOSPHAMIDE [Concomitant]
  2. MABTHERA [Suspect]
     Indication: CHRONIC LYMPHOCYTIC LEUKAEMIA
     Dosage: MAINTAINENCE THERAPY
     Route: 042
     Dates: start: 20120105
  3. IMMUNE GLOBULIN INTRAVENOUS (HUMAN) [Concomitant]
     Indication: CHRONIC LYMPHOCYTIC LEUKAEMIA
     Route: 042
     Dates: start: 20120116
  4. FLUDARABINE PHOSPHATE [Concomitant]
  5. DEXAMETHASONE [Suspect]
     Indication: CHRONIC LYMPHOCYTIC LEUKAEMIA
     Route: 042
     Dates: start: 20120105

REACTIONS (3)
  - CAECITIS [None]
  - PANCYTOPENIA [None]
  - ABDOMINAL PAIN [None]
